FAERS Safety Report 5149111-6 (Version None)
Quarter: 2006Q4

REPORT INFORMATION
  Report Type: 
  Country: None (occurrence: None)
  Receive Date: 20061113
  Receipt Date: 20060728
  Transmission Date: 20070319
  Serious: No
  Sender: FDA-Public Use
  Company Number: US-GLAXOSMITHKLINE-A0613951A

PATIENT
  Age: 80 Year
  Sex: Female

DRUGS (3)
  1. COREG [Suspect]
     Indication: HYPERTENSION
     Dosage: 25MG PER DAY
     Route: 048
     Dates: start: 20040101
  2. COUMADIN [Concomitant]
  3. ACTOS [Concomitant]

REACTIONS (2)
  - DIZZINESS [None]
  - FATIGUE [None]
